FAERS Safety Report 7994308-0 (Version None)
Quarter: 2011Q4

REPORT INFORMATION
  Report Type: 
  Country: None (occurrence: None)
  Receive Date: 20111217
  Receipt Date: 20111217
  Transmission Date: 20120403
  Serious: Yes (Death)
  Sender: FDA-Public Use
  Company Number: None

PATIENT
  Sex: Male
  Weight: 84.1 kg

DRUGS (2)
  1. INCIVEK [Suspect]
     Indication: HEPATITIS
     Dosage: 375 MG X2 TID PO
     Route: 048
     Dates: start: 20110921, end: 20111209
  2. RIBAVIRIN [Suspect]
     Indication: HEPATITIS
     Dosage: 200 MG X3 AM BID PO 200 MG X2 PM
     Route: 048
     Dates: start: 20110921, end: 20111209

REACTIONS (1)
  - SUDDEN DEATH [None]
